FAERS Safety Report 9548649 (Version 1)
Quarter: 2013Q3

REPORT INFORMATION
  Report Type: Spontaneous
  Country: US (occurrence: None)
  Receive Date: 20130923
  Receipt Date: 20130923
  Transmission Date: 20140515
  Serious: Yes (Other)
  Sender: FDA-Public Use
  Company Number: None

PATIENT
  Age: 16 Year
  Sex: Female
  Weight: 83.92 kg

DRUGS (1)
  1. PROMETHAZINE [Suspect]
     Indication: RHINORRHOEA
     Dosage: ONE TABLESPOON THREE TIMES DAILY TAKEN BY MOUTH
     Route: 048

REACTIONS (4)
  - Aphonia [None]
  - Nausea [None]
  - Vomiting [None]
  - Rectal haemorrhage [None]
